FAERS Safety Report 21186128 (Version 3)
Quarter: 2022Q4

REPORT INFORMATION
  Report Type: Spontaneous
  Country: US (occurrence: US)
  Receive Date: 20220808
  Receipt Date: 20221003
  Transmission Date: 20230112
  Serious: No
  Sender: FDA-Public Use
  Company Number: US-PFIZER INC-202201009671

PATIENT
  Age: 9 Year
  Sex: Female
  Weight: 29.94 kg

DRUGS (2)
  1. GENOTROPIN [Suspect]
     Active Substance: SOMATROPIN
     Indication: Growth hormone deficiency
     Dosage: UNK, DAILY (1.2 DAILY)
     Dates: start: 202107
  2. LEVOTHYROXINE [Concomitant]
     Active Substance: LEVOTHYROXINE
     Indication: Hypothyroidism
     Dosage: 25 UG, UNK

REACTIONS (3)
  - Wrong technique in device usage process [Unknown]
  - Device breakage [Unknown]
  - Drug dose omission by device [Unknown]
